FAERS Safety Report 21253485 (Version 1)
Quarter: 2022Q3

REPORT INFORMATION
  Report Type: Spontaneous
  Country: FI (occurrence: FI)
  Receive Date: 20220825
  Receipt Date: 20220825
  Transmission Date: 20221027
  Serious: Yes (Other)
  Sender: FDA-Public Use
  Company Number: FI-SLATE RUN PHARMACEUTICALS-22FI001276

PATIENT

DRUGS (4)
  1. TOLTERODINE TARTRATE [Suspect]
     Active Substance: TOLTERODINE TARTRATE
     Indication: Product used for unknown indication
     Dosage: GRADUALLY STOPPED
  2. BACLOFEN [Concomitant]
     Active Substance: BACLOFEN
     Indication: Product used for unknown indication
     Dosage: GRADUALLY STOPPED
  3. TIZANIDINE [Concomitant]
     Active Substance: TIZANIDINE
     Indication: Product used for unknown indication
     Dosage: GRADUALLY STOPPED
  4. LEVOTHYROXINE [Concomitant]
     Active Substance: LEVOTHYROXINE
     Indication: Product used for unknown indication

REACTIONS (9)
  - Placental insufficiency [Recovered/Resolved]
  - Dyspnoea [Unknown]
  - Maternal exposure during pregnancy [Recovered/Resolved]
  - Urinary tract infection [Unknown]
  - Haemoglobin decreased [Unknown]
  - Uterine contractions abnormal [Recovered/Resolved]
  - Serum ferritin decreased [Unknown]
  - Procedural haemorrhage [Recovered/Resolved]
  - Fatigue [Unknown]
